FAERS Safety Report 20827005 (Version 1)
Quarter: 2022Q2

REPORT INFORMATION
  Report Type: Spontaneous
  Country: US (occurrence: None)
  Receive Date: 20220513
  Receipt Date: 20220513
  Transmission Date: 20220721
  Serious: Yes (Hospitalization)
  Sender: FDA-Public Use
  Company Number: None

PATIENT
  Age: 59 Year
  Sex: Male
  Weight: 91.1 kg

DRUGS (3)
  1. FLUOROURACIL [Suspect]
     Active Substance: FLUOROURACIL
     Dates: end: 20220323
  2. BEVACIZUMAB [Suspect]
     Active Substance: BEVACIZUMAB
     Dates: end: 20220323
  3. LEUCOVORIN CALCIUM [Suspect]
     Active Substance: LEUCOVORIN CALCIUM
     Dates: end: 20220323

REACTIONS (3)
  - Abdominal distension [None]
  - Cholecystectomy [None]
  - Abdominal pain [None]

NARRATIVE: CASE EVENT DATE: 20220503
